FAERS Safety Report 25924161 (Version 2)
Quarter: 2025Q4

REPORT INFORMATION
  Report Type: Spontaneous
  Country: US (occurrence: US)
  Receive Date: 20251015
  Receipt Date: 20251105
  Transmission Date: 20260117
  Serious: Yes (Other)
  Sender: TEVA
  Company Number: US-TEVA-VS-3379783

PATIENT
  Age: 69 Year
  Sex: Female

DRUGS (5)
  1. MUPIROCIN [Suspect]
     Active Substance: MUPIROCIN
     Indication: Wound infection staphylococcal
     Dosage: 2%
     Route: 061
  2. CEPHALEXIN [Suspect]
     Active Substance: CEPHALEXIN
     Indication: Wound infection staphylococcal
     Route: 065
  3. AMOXICILLIN\CLAVULANIC ACID [Suspect]
     Active Substance: AMOXICILLIN\CLAVULANIC ACID
     Indication: Wound infection staphylococcal
     Dosage: 875MG/125MG ONCE DAILY FOR 2 WEEKS
     Route: 065
  4. PENTOXIFYLLINE [Suspect]
     Active Substance: PENTOXIFYLLINE
     Indication: Segmented hyalinising vasculitis
     Dosage: TIME INTERVAL: 0.33333333 DAYS
     Route: 065
  5. ASPIRIN [Suspect]
     Active Substance: ASPIRIN
     Indication: Segmented hyalinising vasculitis
     Dosage: ASPIRIN
     Route: 065

REACTIONS (2)
  - Drug ineffective [Unknown]
  - Gastrooesophageal reflux disease [Unknown]
